FAERS Safety Report 4456696-1 (Version None)
Quarter: 2004Q3

REPORT INFORMATION
  Report Type: 
  Country: None (occurrence: None)
  Receive Date: 20040921
  Receipt Date: 20040908
  Transmission Date: 20050211
  Serious: Yes (Hospitalization, Other)
  Sender: FDA-Public Use
  Company Number: 2004064694

PATIENT
  Age: 55 Year
  Sex: Female
  Weight: 71.2147 kg

DRUGS (4)
  1. LIPITOR [Suspect]
     Indication: BLOOD CHOLESTEROL
     Dosage: 10 MG (10 MG, 1 IN 1 D), ORAL
     Route: 048
  2. CLONAZEPAM [Concomitant]
  3. CONJUGATED ESTROGENS [Concomitant]
  4. NORTRIPTYLINE HCL [Concomitant]

REACTIONS (7)
  - ANXIETY [None]
  - CONVULSION [None]
  - DEPRESSION [None]
  - MENTAL DISORDER [None]
  - MUSCLE TIGHTNESS [None]
  - PANIC ATTACK [None]
  - TREATMENT NONCOMPLIANCE [None]
